FAERS Safety Report 13615207 (Version 2)
Quarter: 2017Q3

REPORT INFORMATION
  Report Type: Spontaneous
  Country: US (occurrence: US)
  Receive Date: 20170606
  Receipt Date: 20170821
  Transmission Date: 20171127
  Serious: No
  Sender: FDA-Public Use
  Company Number: US-SHIRE-US201712393

PATIENT
  Sex: Female

DRUGS (1)
  1. XIIDRA [Suspect]
     Active Substance: LIFITEGRAST
     Indication: DRY EYE
     Dosage: 1 DROP IN OU, 2X/DAY:BID
     Route: 047
     Dates: start: 201705

REACTIONS (6)
  - Adverse event [Unknown]
  - Instillation site pain [Unknown]
  - Instillation site reaction [Recovered/Resolved]
  - Emotional distress [Unknown]
  - Instillation site discomfort [Unknown]
  - Product quality issue [Unknown]
